FAERS Safety Report 22619923 (Version 1)
Quarter: 2023Q2

REPORT INFORMATION
  Report Type: Spontaneous
  Country: US (occurrence: US)
  Receive Date: 20230620
  Receipt Date: 20230620
  Transmission Date: 20230721
  Serious: No
  Sender: FDA-Public Use
  Company Number: US-GSKCCFUS-Case-01728404_AE-97384

PATIENT
  Sex: Female

DRUGS (2)
  1. BENLYSTA [Suspect]
     Active Substance: BELIMUMAB
     Indication: Systemic lupus erythematosus
     Dosage: UNK
     Route: 058
     Dates: start: 20230515
  2. METHOTREXATE [Concomitant]
     Active Substance: METHOTREXATE
     Indication: Product used for unknown indication
     Dosage: UNK

REACTIONS (16)
  - Dyspnoea [Unknown]
  - Arthralgia [Unknown]
  - Myalgia [Unknown]
  - Influenza [Unknown]
  - Tachycardia [Unknown]
  - Palpitations [Unknown]
  - Anxiety [Unknown]
  - Headache [Unknown]
  - Hyperhidrosis [Unknown]
  - Constipation [Unknown]
  - Frequent bowel movements [Unknown]
  - Diarrhoea [Unknown]
  - Insomnia [Unknown]
  - Rhinorrhoea [Unknown]
  - Oropharyngeal pain [Unknown]
  - Feeling abnormal [Unknown]
